FAERS Safety Report 9157000 (Version 2)
Quarter: 2013Q1

REPORT INFORMATION
  Report Type: Report from Study
  Country: US (occurrence: US)
  Receive Date: 20130312
  Receipt Date: 20130312
  Transmission Date: 20140127
  Serious: Yes (Other)
  Sender: FDA-Public Use
  Company Number: US-JNJFOC-20121111122

PATIENT
  Sex: Female
  Weight: 54.43 kg

DRUGS (4)
  1. REMICADE [Suspect]
     Indication: COLITIS ULCERATIVE
     Route: 042
     Dates: start: 20120402
  2. REMICADE [Suspect]
     Indication: COLITIS ULCERATIVE
     Route: 042
     Dates: start: 20121102, end: 20121102
  3. BALSALAZIDE SODIUM [Suspect]
     Indication: COLITIS
     Route: 048
     Dates: start: 201203
  4. VITAMINS NOS [Concomitant]
     Route: 065

REACTIONS (4)
  - Rhinalgia [Recovered/Resolved]
  - Nasal oedema [Recovered/Resolved]
  - Respiratory disorder [Recovered/Resolved]
  - Sinusitis [Recovered/Resolved]
